FAERS Safety Report 4414313-0 (Version None)
Quarter: 2004Q3

REPORT INFORMATION
  Report Type: 
  Country: None (occurrence: None)
  Receive Date: 20040803
  Receipt Date: 20040702
  Transmission Date: 20050211
  Serious: Yes (Other)
  Sender: FDA-Public Use
  Company Number: PHEH2004US07183

PATIENT
  Age: 46 Year
  Sex: Male
  Weight: 93 kg

DRUGS (3)
  1. DIOVAN HCT [Suspect]
     Indication: HYPERTENSION
     Dosage: UNK, QD
     Route: 048
     Dates: start: 20040602, end: 20040701
  2. PROZAC [Concomitant]
     Dosage: 10 MG, BID
  3. ASPIRIN [Concomitant]
     Dosage: 81 MG, QD

REACTIONS (14)
  - ARTHRALGIA [None]
  - BASOPHIL COUNT INCREASED [None]
  - CYANOSIS [None]
  - JOINT SWELLING [None]
  - LYMPHOCYTE COUNT DECREASED [None]
  - MUSCULOSKELETAL STIFFNESS [None]
  - MYALGIA [None]
  - NECK PAIN [None]
  - OEDEMA PERIPHERAL [None]
  - PAIN IN EXTREMITY [None]
  - RAYNAUD'S PHENOMENON [None]
  - RED BLOOD CELL SEDIMENTATION RATE INCREASED [None]
  - RHEUMATOID FACTOR [None]
  - WHITE BLOOD CELL COUNT INCREASED [None]
